FAERS Safety Report 6913726-2 (Version None)
Quarter: 2010Q3

REPORT INFORMATION
  Report Type: 
  Country: None (occurrence: None)
  Receive Date: 20100806
  Receipt Date: 20100806
  Transmission Date: 20110219
  Serious: Yes (Life-Threatening)
  Sender: FDA-Public Use
  Company Number: None

PATIENT
  Age: 51 Year
  Sex: Female
  Weight: 77.1115 kg

DRUGS (1)
  1. ULORIC [Suspect]
     Indication: GOUT
     Dosage: 40 MG. 1X DAILY ORAL
     Route: 048
     Dates: start: 20100707, end: 20100713

REACTIONS (6)
  - ABDOMINAL PAIN UPPER [None]
  - DIARRHOEA [None]
  - FATIGUE [None]
  - HEMIPARESIS [None]
  - MYALGIA [None]
  - PYREXIA [None]
